FAERS Safety Report 6518004-1 (Version None)
Quarter: 2009Q4

REPORT INFORMATION
  Report Type: 
  Country: None (occurrence: None)
  Receive Date: 20091224
  Receipt Date: 20091217
  Transmission Date: 20100525
  Serious: Yes (Hospitalization)
  Sender: FDA-Public Use
  Company Number: GB-ELI_LILLY_AND_COMPANY-GB200802004076

PATIENT
  Sex: Female
  Weight: 2.83 kg

DRUGS (14)
  1. CYMBALTA [Suspect]
     Dosage: 60 MG, DAILY (1/D)
     Route: 064
     Dates: start: 20070104
  2. CYMBALTA [Suspect]
     Dosage: UNK, UNKNOWN
     Route: 065
     Dates: start: 20071106
  3. CONCERTA [Concomitant]
     Dosage: 18 MG, UNK
     Route: 064
  4. ORAMORPH SR [Concomitant]
     Route: 064
  5. BECLOMETASONE [Concomitant]
     Route: 064
  6. CALCIUM CARBONATE [Concomitant]
     Route: 064
  7. CLEXANE [Concomitant]
     Route: 064
  8. CODEINE PHOSPHATE [Concomitant]
     Route: 064
  9. IBUPROFEN [Concomitant]
     Route: 064
  10. NULYTELY [Concomitant]
     Route: 064
  11. NICOTINE [Concomitant]
     Route: 064
  12. ALBUTEROL [Concomitant]
     Route: 064
  13. SODIUM ALGINATE [Concomitant]
     Route: 064
  14. SODIUM BICARBONATE [Concomitant]
     Route: 064

REACTIONS (2)
  - DRUG EXPOSURE DURING PREGNANCY [None]
  - PREMATURE BABY [None]
